FAERS Safety Report 10006986 (Version 1)
Quarter: 2014Q1

REPORT INFORMATION
  Report Type: Spontaneous
  Country: US (occurrence: None)
  Receive Date: 20140312
  Receipt Date: 20140312
  Transmission Date: 20141002
  Serious: Yes (Life-Threatening, Disabling)
  Sender: FDA-Public Use
  Company Number: None

PATIENT
  Age: 45 Year
  Sex: 0

DRUGS (1)
  1. CIPROFLOXACIN [Suspect]
     Dosage: 7 PILLS TOTAL TWICE DAILY TAKEN BY MOUTH
     Route: 048

REACTIONS (12)
  - Hallucination [None]
  - Insomnia [None]
  - Anxiety [None]
  - Intentional self-injury [None]
  - Tinnitus [None]
  - Blood pressure increased [None]
  - Neuropathy peripheral [None]
  - Feeling abnormal [None]
  - Muscle spasms [None]
  - Tendon pain [None]
  - Muscle tightness [None]
  - Nasopharyngitis [None]
